FAERS Safety Report 12990432 (Version 5)
Quarter: 2017Q3

REPORT INFORMATION
  Report Type: Report from Study
  Country: AU (occurrence: AU)
  Receive Date: 20161201
  Receipt Date: 20170717
  Transmission Date: 20171127
  Serious: Yes (Hospitalization, Other)
  Sender: FDA-Public Use
  Company Number: AU-REGENERON PHARMACEUTICALS, INC.-2016-24376

PATIENT

DRUGS (6)
  1. EYLEA [Suspect]
     Active Substance: AFLIBERCEPT
     Dosage: 2 MG, ONCE 11-12 WEEKS, TOTAL NUMBER OF DOSES RECEIVED UNSPECIFIED
     Route: 031
     Dates: start: 201610, end: 201610
  2. XALATAN [Suspect]
     Active Substance: LATANOPROST
     Indication: GLAUCOMA
     Dosage: UNK
     Route: 047
  3. EYLEA [Suspect]
     Active Substance: AFLIBERCEPT
     Dosage: UNK
     Route: 031
  4. AZOPT [Suspect]
     Active Substance: BRINZOLAMIDE
     Indication: GLAUCOMA
  5. EYLEA [Suspect]
     Active Substance: AFLIBERCEPT
     Dosage: 2 MG, Q2MON
     Route: 031
  6. EYLEA [Suspect]
     Active Substance: AFLIBERCEPT
     Indication: NEOVASCULAR AGE-RELATED MACULAR DEGENERATION
     Dosage: 2 MG, 11-12 WEEKS, TOTAL NUMBER OF DOSES RECEIVED UNSPECIFIED
     Route: 031
     Dates: start: 20150122

REACTIONS (10)
  - Glaucoma [Not Recovered/Not Resolved]
  - Nausea [Unknown]
  - Gastrointestinal disorder [Unknown]
  - Productive cough [Unknown]
  - Injection site discomfort [Unknown]
  - Gastric neoplasm [Unknown]
  - Erythema [Not Recovered/Not Resolved]
  - Blood sodium decreased [Unknown]
  - Dry eye [Not Recovered/Not Resolved]
  - Skin burning sensation [Unknown]

NARRATIVE: CASE EVENT DATE: 201611
